FAERS Safety Report 6869822-1 (Version None)
Quarter: 2010Q3

REPORT INFORMATION
  Report Type: 
  Country: None (occurrence: None)
  Receive Date: 20100722
  Receipt Date: 20080822
  Transmission Date: 20110219
  Serious: No
  Sender: FDA-Public Use
  Company Number: US-PFIZER INC-2008071704

PATIENT
  Sex: Female
  Weight: 65.9 kg

DRUGS (3)
  1. CHANTIX [Suspect]
     Indication: SMOKING CESSATION THERAPY
     Dates: start: 20080818
  2. PRILOSEC [Concomitant]
     Indication: GASTROOESOPHAGEAL REFLUX DISEASE
  3. ALL OTHER THERAPEUTIC PRODUCTS [Concomitant]
     Indication: DEPRESSION

REACTIONS (7)
  - APATHY [None]
  - DISTURBANCE IN ATTENTION [None]
  - DIZZINESS [None]
  - HOT FLUSH [None]
  - HYPERHIDROSIS [None]
  - LETHARGY [None]
  - VISION BLURRED [None]
